FAERS Safety Report 23720330 (Version 1)
Quarter: 2024Q2

REPORT INFORMATION
  Report Type: Spontaneous
  Country: RU (occurrence: RU)
  Receive Date: 20240408
  Receipt Date: 20240408
  Transmission Date: 20240715
  Serious: Yes (Other)
  Sender: FDA-Public Use
  Company Number: RU-ANIPHARMA-2024-RU-000010

PATIENT
  Sex: Female

DRUGS (3)
  1. ANASTROZOLE [Suspect]
     Active Substance: ANASTROZOLE
     Indication: Product used for unknown indication
     Route: 048
  2. GOSERELIN [Suspect]
     Active Substance: GOSERELIN
     Route: 058
  3. UNSPECIFIED INGREDIENT [Concomitant]
     Active Substance: UNSPECIFIED INGREDIENT

REACTIONS (7)
  - Ovarian cyst ruptured [Recovering/Resolving]
  - Ovarian cyst [Unknown]
  - Hypoaesthesia [Unknown]
  - Neuralgia [Unknown]
  - Nasal dryness [Unknown]
  - Hyperaesthesia [Unknown]
  - Nervous system disorder [Unknown]
